FAERS Safety Report 7484516-X (Version None)
Quarter: 2011Q2

REPORT INFORMATION
  Report Type: 
  Country: None (occurrence: None)
  Receive Date: 20110517
  Receipt Date: 20110509
  Transmission Date: 20111010
  Serious: No
  Sender: FDA-Public Use
  Company Number: US-BIOGENIDEC-2011BI007992

PATIENT
  Age: 60 Year
  Sex: Female

DRUGS (1)
  1. TYSABRI [Suspect]
     Indication: MULTIPLE SCLEROSIS
     Route: 042
     Dates: start: 20090902

REACTIONS (6)
  - EXTREMITY CONTRACTURE [None]
  - LOSS OF CONTROL OF LEGS [None]
  - PYREXIA [None]
  - DYSKINESIA [None]
  - WHITE BLOOD CELL COUNT INCREASED [None]
  - FATIGUE [None]
